FAERS Safety Report 6516867-7 (Version None)
Quarter: 2009Q4

REPORT INFORMATION
  Report Type: 
  Country: None (occurrence: None)
  Receive Date: 20091223
  Receipt Date: 20091209
  Transmission Date: 20100525
  Serious: Yes (Other)
  Sender: FDA-Public Use
  Company Number: US-PFIZER INC-2009311043

PATIENT

DRUGS (2)
  1. GEODON [Suspect]
     Dosage: UNK
  2. LITHIUM CARBONATE [Suspect]
     Dosage: UNK

REACTIONS (1)
  - PARKINSONISM [None]
